FAERS Safety Report 7375586-8 (Version None)
Quarter: 2011Q1

REPORT INFORMATION
  Report Type: 
  Country: None (occurrence: None)
  Receive Date: 20110325
  Receipt Date: 20110314
  Transmission Date: 20110831
  Serious: Yes (Hospitalization)
  Sender: FDA-Public Use
  Company Number: CZ-JNJFOC-20110308979

PATIENT
  Sex: Female

DRUGS (7)
  1. GOLIMUMAB [Suspect]
     Indication: RHEUMATOID ARTHRITIS
     Route: 058
  2. METHOTREXATE [Concomitant]
  3. MEDROL [Concomitant]
  4. LOKREN [Concomitant]
  5. CARDILAN [Concomitant]
  6. OSTEOCARE [Concomitant]
  7. ACIDUM FOLICUM [Concomitant]

REACTIONS (1)
  - FUNGAL INFECTION [None]
